FAERS Safety Report 13262582 (Version 2)
Quarter: 2017Q1

REPORT INFORMATION
  Report Type: Spontaneous
  Country: None (occurrence: JP)
  Receive Date: 20170223
  Receipt Date: 20170310
  Transmission Date: 20170428
  Serious: Yes (Hospitalization, Other)
  Sender: FDA-Public Use
  Company Number: JP-ALKEM LABORATORIES LIMITED-JP-ALKEM-2017-00066

PATIENT
  Age: 32 Year
  Sex: Male
  Weight: 52 kg

DRUGS (3)
  1. QUETIAPINE FUMARATE. [Suspect]
     Active Substance: QUETIAPINE FUMARATE
     Dosage: 50 MG, QD
  2. QUETIAPINE FUMARATE. [Suspect]
     Active Substance: QUETIAPINE FUMARATE
     Indication: SCHIZOPHRENIA
     Dosage: 25 MG, QD
  3. OLANZAPINE. [Suspect]
     Active Substance: OLANZAPINE
     Indication: SCHIZOPHRENIA
     Dosage: 5 MG, QD
     Dates: start: 200511

REACTIONS (2)
  - Diabetic ketoacidosis [Recovering/Resolving]
  - Type 1 diabetes mellitus [Recovering/Resolving]

NARRATIVE: CASE EVENT DATE: 20060406
